FAERS Safety Report 4514665-7 (Version None)
Quarter: 2004Q4

REPORT INFORMATION
  Report Type: 
  Country: None (occurrence: None)
  Receive Date: 20041126
  Receipt Date: 20041112
  Transmission Date: 20050328
  Serious: Yes (Hospitalization)
  Sender: FDA-Public Use
  Company Number: 2004-0007745

PATIENT
  Age: 68 Year
  Sex: Male

DRUGS (4)
  1. VIREAD [Suspect]
     Indication: HIV INFECTION
     Dosage: 300 MG, 1 IN 1 D, ORAL
     Route: 048
     Dates: start: 20021201, end: 20030223
  2. FLUCONAZOLE [Suspect]
     Dosage: 1 DOSAGE FORMS, 4 IN 1 D, ORAL
     Route: 048
     Dates: start: 20021201
  3. COMBIVIR [Suspect]
     Indication: HIV INFECTION
     Dosage: 1 DOSAGE FORMS, 2 IN 1 D, ORAL
     Route: 048
     Dates: start: 20021201, end: 20030223
  4. KALETRA [Suspect]
     Indication: HIV INFECTION
     Dosage: 3 DOSAGE FORMS, 1 IN 1 D, ORAL
     Route: 048
     Dates: start: 20021201, end: 20030223

REACTIONS (12)
  - ANGINA UNSTABLE [None]
  - BLOOD TRIGLYCERIDES INCREASED [None]
  - BRAIN SCAN ABNORMAL [None]
  - CAROTID ARTERY STENOSIS [None]
  - CORONARY ARTERY STENOSIS [None]
  - EJECTION FRACTION DECREASED [None]
  - HEMIPARESIS [None]
  - HYPOKINESIA [None]
  - MOTOR DYSFUNCTION [None]
  - SYPHILIS [None]
  - TRANSIENT ISCHAEMIC ATTACK [None]
  - VENTRICULAR HYPERTROPHY [None]
